FAERS Safety Report 22670973 (Version 4)
Quarter: 2024Q2

REPORT INFORMATION
  Report Type: Spontaneous
  Country: JP (occurrence: JP)
  Receive Date: 20230705
  Receipt Date: 20240426
  Transmission Date: 20240716
  Serious: Yes (Other)
  Sender: FDA-Public Use
  Company Number: JP-ALXN-A202308597

PATIENT
  Age: 67 Year
  Sex: Male

DRUGS (4)
  1. SOLIRIS [Suspect]
     Active Substance: ECULIZUMAB
     Indication: Atypical haemolytic uraemic syndrome
     Dosage: 900 MILLIGRAM, QW
     Route: 042
     Dates: start: 20230523, end: 20230530
  2. SOLU-MEDROL [Suspect]
     Active Substance: METHYLPREDNISOLONE SODIUM SUCCINATE
     Indication: Plasma cell myeloma
     Dosage: 1000 MILLIGRAM, QD
     Route: 041
     Dates: start: 20230512, end: 20230514
  3. SOLU-MEDROL [Suspect]
     Active Substance: METHYLPREDNISOLONE SODIUM SUCCINATE
     Dosage: TAPERED, QD
     Route: 041
     Dates: start: 20230515, end: 20230609
  4. PREDNISOLONE SODIUM SUCCINATE [Suspect]
     Active Substance: PREDNISOLONE SODIUM SUCCINATE
     Indication: Plasma cell myeloma
     Dosage: UNK, QD
     Route: 048
     Dates: start: 20230512, end: 20230609

REACTIONS (3)
  - Systemic candida [Recovering/Resolving]
  - Pneumonia fungal [Recovering/Resolving]
  - Cytomegalovirus infection [Recovered/Resolved]

NARRATIVE: CASE EVENT DATE: 20230528
